FAERS Safety Report 5284477-8 (Version None)
Quarter: 2007Q1

REPORT INFORMATION
  Report Type: 
  Country: None (occurrence: None)
  Receive Date: 20070328
  Receipt Date: 20070316
  Transmission Date: 20070707
  Serious: Yes (Hospitalization)
  Sender: FDA-Public Use
  Company Number: 2007-00756

PATIENT
  Age: 72 Year
  Sex: Male

DRUGS (21)
  1. VELCADE [Suspect]
     Indication: MULTIPLE MYELOMA
     Dosage: UNK, UNK, INTRAVENOUS
     Route: 042
     Dates: start: 20070213, end: 20070223
  2. ROMIDEPSIN (DEPSIPEPTIDE) POWDER (EXCEPT [DPO]) [Suspect]
     Indication: MULTIPLE MYELOMA
     Dosage: 12.00 MG, UNK, INTRAVENOUS
     Route: 042
     Dates: start: 20070213, end: 20070227
  3. DEXAMETHASONE [Suspect]
     Indication: MULTIPLE MYELOMA
     Dosage: 20.00 MG, UNK, ORAL
     Route: 048
     Dates: start: 20070213, end: 20070224
  4. THALIDOMIDE [Concomitant]
  5. ACCUPRIL [Concomitant]
  6. MAGNESIUM ASPARTATE (MAGNESIUM ASPARTATE) [Concomitant]
  7. NORVASC [Concomitant]
  8. ZOMETA [Concomitant]
  9. SEPTRIN FORTE (SULFAMETHOXAZOLE, TRIMETHOPRIM) [Concomitant]
  10. PANAFCORTELONE (PREDNISOLONE) [Concomitant]
  11. SLOW-K [Concomitant]
  12. PANAMAX (PARACETAMOL) [Concomitant]
  13. ZYLOPRIM [Concomitant]
  14. AZITHROMYCIN [Concomitant]
  15. VALTREX [Concomitant]
  16. PRAMIN (METOCLOPRAMIDE) [Concomitant]
  17. UREMIDE (FUROSEMIDE) [Concomitant]
  18. NEXIUM [Concomitant]
  19. PIPERACILLIN SODIUM AND TAZOBACTAM SODIUM [Concomitant]
  20. RANIHEXAL (RANITIDINE HYDROCHLORIDE) TABLET [Concomitant]
  21. MAGMIN (MAGNESIUM ASPARTATE) TABLET [Concomitant]

REACTIONS (3)
  - HYPERCALCAEMIA [None]
  - PARAPROTEINAEMIA [None]
  - THROMBOCYTOPENIA [None]
